FAERS Safety Report 25882803 (Version 2)
Quarter: 2025Q4

REPORT INFORMATION
  Report Type: Spontaneous
  Country: JP (occurrence: JP)
  Receive Date: 20251006
  Receipt Date: 20251015
  Transmission Date: 20260117
  Serious: No
  Sender: WAYLIS THERAPEUTICS LLC
  Company Number: JP-WT-2024-15056

PATIENT
  Age: 7 Decade
  Sex: Male

DRUGS (5)
  1. LUNESTA [Suspect]
     Active Substance: ESZOPICLONE
     Indication: Insomnia
     Route: 048
  2. LORAZEPAM [Concomitant]
     Active Substance: LORAZEPAM
     Indication: Insomnia
     Route: 048
  3. ZOLPIDEM TARTRATE [Concomitant]
     Active Substance: ZOLPIDEM TARTRATE
     Indication: Insomnia
     Route: 048
  4. PROPYPHENAZONE [Concomitant]
     Active Substance: PROPYPHENAZONE
     Route: 048
  5. DULOXETINE [Concomitant]
     Active Substance: DULOXETINE
     Route: 048

REACTIONS (3)
  - Somnolence [Recovering/Resolving]
  - Initial insomnia [Recovering/Resolving]
  - Suicidal ideation [Recovering/Resolving]
